FAERS Safety Report 5780046-1 (Version None)
Quarter: 2008Q2

REPORT INFORMATION
  Report Type: 
  Country: None (occurrence: None)
  Receive Date: 20080620
  Receipt Date: 20080610
  Transmission Date: 20081010
  Serious: Yes (Hospitalization, Disabling)
  Sender: FDA-Public Use
  Company Number: US-ROCHE-569837

PATIENT
  Sex: Female

DRUGS (14)
  1. VALGANCICLOVIR HCL [Suspect]
     Route: 048
     Dates: start: 20080228
  2. VALGANCICLOVIR HCL [Suspect]
     Route: 048
  3. TRUVADA [Interacting]
     Route: 048
     Dates: start: 20080310, end: 20080321
  4. TRUVADA [Interacting]
     Route: 048
     Dates: start: 20080310, end: 20080321
  5. ATAZANAVIR [Interacting]
     Route: 048
     Dates: start: 20080317
  6. ATAZANAVIR [Interacting]
     Route: 048
  7. RITONAVIR [Interacting]
     Route: 048
     Dates: start: 20080317
  8. RITONAVIR [Interacting]
     Route: 048
  9. SULFAMETHOXAZOLE AND TRIMETHOPRIM [Interacting]
     Route: 048
     Dates: start: 20080228
  10. SULFAMETHOXAZOLE AND TRIMETHOPRIM [Interacting]
     Route: 048
     Dates: start: 20080228
  11. NEUPOGEN [Concomitant]
     Indication: NEUTROPENIA
     Route: 058
     Dates: start: 20080310
  12. AZITHROMYCIN [Concomitant]
     Route: 048
     Dates: start: 20080201
  13. ZOFRAN [Concomitant]
     Indication: NAUSEA
     Route: 048
     Dates: start: 20080228
  14. KLONOPIN [Concomitant]
     Indication: ANXIETY
     Route: 048
     Dates: start: 20080228

REACTIONS (3)
  - DRUG INTERACTION [None]
  - NEUTROPENIA [None]
  - RENAL TUBULAR NECROSIS [None]
